FAERS Safety Report 8143901-3 (Version None)
Quarter: 2012Q1

REPORT INFORMATION
  Report Type: 
  Country: None (occurrence: None)
  Receive Date: 20120217
  Receipt Date: 20120203
  Transmission Date: 20120608
  Serious: Yes (Other)
  Sender: FDA-Public Use
  Company Number: US-RANBAXY-2011US-46082

PATIENT
  Age: 79 Year
  Sex: Male

DRUGS (1)
  1. ISOTRETINOIN [Suspect]
     Indication: SKIN CANCER
     Dosage: 10 MG, EVERY OTHER DAY
     Route: 048

REACTIONS (2)
  - OFF LABEL USE [None]
  - ARTERIAL THROMBOSIS LIMB [None]
